FAERS Safety Report 25725669 (Version 1)
Quarter: 2025Q3

REPORT INFORMATION
  Report Type: Spontaneous
  Country: US (occurrence: None)
  Receive Date: 20250823
  Receipt Date: 20250823
  Transmission Date: 20251021
  Serious: Yes (Congenital Anomaly)
  Sender: FDA-CTU
  Company Number: None

PATIENT
  Age: 31 Year
  Sex: Female
  Weight: 72 kg

DRUGS (3)
  1. ACETAZOLAMIDE [Suspect]
     Active Substance: ACETAZOLAMIDE
     Indication: Cerebrovascular stenosis
     Dosage: FREQUENCY : TWICE A DAY;?
     Route: 048
     Dates: start: 20241001, end: 20250722
  2. glucometer [Concomitant]
  3. VITAMINS [Concomitant]
     Active Substance: VITAMINS

REACTIONS (2)
  - Congenital hand malformation [None]
  - Exposure during pregnancy [None]

NARRATIVE: CASE EVENT DATE: 20250722
